FAERS Safety Report 10048007 (Version 1)
Quarter: 2014Q1

REPORT INFORMATION
  Report Type: Spontaneous
  Country: GB (occurrence: GB)
  Receive Date: 20140331
  Receipt Date: 20140331
  Transmission Date: 20141002
  Serious: Yes (Other)
  Sender: FDA-Public Use
  Company Number: PHHY2014GB034635

PATIENT
  Age: 29 Year
  Sex: Female

DRUGS (1)
  1. PHENOXYMETHYLPENICILLIN [Suspect]
     Dates: start: 20140307

REACTIONS (3)
  - Loss of consciousness [Unknown]
  - Rash [Unknown]
  - Dyspnoea [Unknown]
